FAERS Safety Report 12744557 (Version 1)
Quarter: 2016Q3

REPORT INFORMATION
  Report Type: Spontaneous
  Country: US (occurrence: US)
  Receive Date: 20160914
  Receipt Date: 20160914
  Transmission Date: 20161109
  Serious: No
  Sender: FDA-Public Use
  Company Number: US-JAZZ-JPI-P-017485

PATIENT
  Sex: Female

DRUGS (25)
  1. IBUPROFEN IB [Concomitant]
     Active Substance: IBUPROFEN
     Dosage: UNK
  2. COENZYME Q10 [Concomitant]
     Active Substance: UBIDECARENONE
  3. VITAMIN D3 [Concomitant]
     Active Substance: CHOLECALCIFEROL
  4. NEXIUM [Concomitant]
     Active Substance: ESOMEPRAZOLE MAGNESIUM
  5. XYREM [Suspect]
     Active Substance: SODIUM OXYBATE
     Indication: NARCOLEPSY
     Dosage: 2.25 G, BID
     Route: 048
     Dates: start: 200910, end: 200910
  6. XYREM [Suspect]
     Active Substance: SODIUM OXYBATE
     Dosage: 6 G, TOTAL NIGHTLY DOSE
     Route: 048
  7. CITALOPRAM [Concomitant]
     Active Substance: CITALOPRAM HYDROBROMIDE
  8. PROVIGIL [Concomitant]
     Active Substance: MODAFINIL
  9. ZETIA [Concomitant]
     Active Substance: EZETIMIBE
  10. PANTOPRAZOLE SODIUM DR [Concomitant]
     Active Substance: PANTOPRAZOLE SODIUM
  11. ATELVIA DR [Concomitant]
  12. PRAVASTATIN SODIUM. [Concomitant]
     Active Substance: PRAVASTATIN SODIUM
  13. XYREM [Suspect]
     Active Substance: SODIUM OXYBATE
     Dosage: 4.5 G, BID
     Route: 048
     Dates: start: 200911
  14. BIOTIN [Concomitant]
     Active Substance: BIOTIN
  15. ALIVE WOMEN^S GUMMY VITAMINS [Concomitant]
  16. NUVIGIL [Concomitant]
     Active Substance: ARMODAFINIL
  17. BONIVA [Concomitant]
     Active Substance: IBANDRONATE SODIUM
  18. XYREM [Suspect]
     Active Substance: SODIUM OXYBATE
     Dosage: DOSE ADJUSTMENTS
     Route: 048
  19. CITRACAL + D [Concomitant]
     Active Substance: CALCIUM CITRATE\VITAMIN D
  20. CITALOPRAM [Concomitant]
     Active Substance: CITALOPRAM HYDROBROMIDE
  21. XANAX [Concomitant]
     Active Substance: ALPRAZOLAM
  22. HYDROCHLOROTHIAZIDE. [Concomitant]
     Active Substance: HYDROCHLOROTHIAZIDE
  23. CELEBREX [Concomitant]
     Active Substance: CELECOXIB
  24. OMEGA-3 KRILL OIL [Concomitant]
  25. TYLENOL [Concomitant]
     Active Substance: ACETAMINOPHEN

REACTIONS (1)
  - Alopecia [Not Recovered/Not Resolved]

NARRATIVE: CASE EVENT DATE: 2010
